FAERS Safety Report 8898701 (Version 2)
Quarter: 2013Q1

REPORT INFORMATION
  Report Type: Report from Study
  Country: CO (occurrence: CO)
  Receive Date: 20121109
  Receipt Date: 20121116
  Transmission Date: 20140127
  Serious: Yes (Hospitalization)
  Sender: FDA-Public Use
  Company Number: CO-ASTRAZENECA-2012SE84357

PATIENT
  Age: 27069 Day
  Sex: Male

DRUGS (6)
  1. AZD6140 [Suspect]
     Indication: CORONARY ARTERY DISEASE
     Route: 048
     Dates: start: 20111111, end: 20120824
  2. METOPROLOL [Suspect]
     Indication: HYPERTENSION
     Route: 048
     Dates: end: 20120824
  3. ATORVASTATIN [Concomitant]
     Indication: DYSLIPIDAEMIA
     Route: 048
     Dates: start: 20120221
  4. THYROXINE [Concomitant]
     Indication: HYPOTHYROIDISM
     Route: 048
  5. FLUOXETINE [Concomitant]
     Indication: DYSTHYMIC DISORDER
     Route: 048
  6. ASA [Concomitant]
     Route: 048

REACTIONS (1)
  - Sinus bradycardia [Recovered/Resolved]
